FAERS Safety Report 8929205 (Version 2)
Quarter: 2013Q1

REPORT INFORMATION
  Report Type: Spontaneous
  Country: NO (occurrence: None)
  Receive Date: 20121119
  Receipt Date: 20130123
  Transmission Date: 20140127
  Serious: Yes (Death)
  Sender: FDA-Public Use
  Company Number: AUR-APL-2012-04857

PATIENT
  Age: 82 Year
  Sex: Female

DRUGS (8)
  1. METFORMIN (METFORMIN) [Suspect]
     Indication: DIABETES MELLITUS
     Dosage: 2 + 1 + 2 TABLETS (500 MG) DAILY, ORAL
  2. SIMVASTATIN (SIMVASTATIN) [Concomitant]
  3. ZYLORIC (ALLOPURINOL) [Concomitant]
  4. EPINAT (PHENYTOIN) [Concomitant]
  5. BURINEX (BUMETANIDE) [Concomitant]
  6. SORBANGIL (ISOSORBIDE DINITRATE) [Concomitant]
  7. LEVAXIN (LEVOTHYROXINE SODIUM) [Concomitant]
  8. RENITEC COMP (VASERETIC) [Concomitant]

REACTIONS (5)
  - Hypotension [None]
  - Lactic acidosis [None]
  - No therapeutic response [None]
  - Toxicity to various agents [None]
  - Renal failure acute [None]
